FAERS Safety Report 10430369 (Version 1)
Quarter: 2014Q3

REPORT INFORMATION
  Report Type: Spontaneous
  Country: US (occurrence: None)
  Receive Date: 20140813
  Receipt Date: 20140813
  Transmission Date: 20150326
  Serious: Yes (Hospitalization)
  Sender: FDA-Public Use
  Company Number: 2014SE2330

PATIENT
  Age: 3 Month
  Sex: Male
  Weight: 4.9 kg

DRUGS (2)
  1. SYNAGIS [Suspect]
     Active Substance: PALIVIZUMAB
     Dosage: 50 MG/0.5 ML VL LIQUID/ 15MG/KG EVERY 28-30 DAYS IM
     Route: 030
     Dates: start: 201311
  2. SYNAGIS [Suspect]
     Active Substance: PALIVIZUMAB
     Dates: start: 201312

REACTIONS (1)
  - Respiratory syncytial virus infection [None]

NARRATIVE: CASE EVENT DATE: 20131230
